FAERS Safety Report 6901983-8 (Version None)
Quarter: 2010Q3

REPORT INFORMATION
  Report Type: 
  Country: None (occurrence: None)
  Receive Date: 20100803
  Receipt Date: 20080330
  Transmission Date: 20110219
  Serious: No
  Sender: FDA-Public Use
  Company Number: US-PFIZER INC-2008028380

PATIENT
  Sex: Female
  Weight: 69.09 kg

DRUGS (8)
  1. LYRICA [Suspect]
     Indication: FIBROMYALGIA
     Route: 048
     Dates: start: 20080201
  2. AMITRIPTYLINE HYDROCHLORIDE [Concomitant]
  3. ZOCOR [Concomitant]
  4. LISINOPRIL [Concomitant]
  5. HYDROCHLOROTHIAZIDE [Concomitant]
  6. KLONOPIN [Concomitant]
  7. DICLOFENAC [Concomitant]
  8. ALL OTHER THERAPEUTIC PRODUCTS [Concomitant]

REACTIONS (3)
  - FEELING ABNORMAL [None]
  - FEELING DRUNK [None]
  - OEDEMA PERIPHERAL [None]
